FAERS Safety Report 15783481 (Version 1)
Quarter: 2019Q1

REPORT INFORMATION
  Report Type: Report from Study
  Country: BR (occurrence: BR)
  Receive Date: 20190102
  Receipt Date: 20190102
  Transmission Date: 20190417
  Serious: Yes (Other)
  Sender: FDA-Public Use
  Company Number: BR-SA-2018SA393429

PATIENT
  Age: 59 Year
  Sex: Male
  Weight: 108 kg

DRUGS (4)
  1. INSULIN GLARGINE/LIXISENATIDE [Suspect]
     Active Substance: INSULIN GLARGINE\LIXISENATIDE
     Indication: TYPE 2 DIABETES MELLITUS
     Dosage: UNK UNK, QD
     Route: 058
  2. AAS [Concomitant]
     Active Substance: ASPIRIN
  3. GLIFAGE [Concomitant]
     Active Substance: METFORMIN HYDROCHLORIDE
     Indication: DIABETES MELLITUS
     Dosage: UNK
  4. LOSARTAN [LOSARTAN POTASSIUM] [Concomitant]
     Indication: HYPERTENSION
     Dosage: UNK UNK, QD

REACTIONS (6)
  - Nail operation [Unknown]
  - Product storage error [Unknown]
  - Nail bed bleeding [Unknown]
  - Metabolic surgery [Unknown]
  - Weight decreased [Unknown]
  - Weight decreased [Unknown]

NARRATIVE: CASE EVENT DATE: 201806
